FAERS Safety Report 9461990 (Version 1)
Quarter: 2013Q3

REPORT INFORMATION
  Report Type: Report from Study
  Country: NZ (occurrence: NZ)
  Receive Date: 20130816
  Receipt Date: 20130816
  Transmission Date: 20140515
  Serious: Yes (Death, Hospitalization, Disabling)
  Sender: FDA-Public Use
  Company Number: NZ-UCBSA-094813

PATIENT
  Age: 79 Year
  Sex: Female

DRUGS (20)
  1. ROTIGOTINE [Suspect]
     Indication: PARKINSON^S DISEASE
     Route: 061
  2. SINEMET [Suspect]
     Indication: PARKINSON^S DISEASE
     Dosage: STRENGTH: 150+37 1/2
     Route: 048
  3. SINEMET [Suspect]
     Indication: PARKINSON^S DISEASE
     Dosage: 25MG+100MG, ONE AND A HALF, 1 MONTH
  4. ENTACAPONE [Suspect]
     Indication: PARKINSON^S DISEASE
     Dosage: 1 MONTH
     Route: 048
  5. PARACETAMOL [Concomitant]
     Dosage: 1 MONTH
  6. DOMPERIDONE [Concomitant]
     Dosage: 1 MONTH
  7. LAXSOL [Concomitant]
     Indication: CONSTIPATION
     Dosage: 2 TABLETS, 1 MONTH
  8. ASPIRIN [Concomitant]
     Indication: DYSPHAGIA
     Dosage: DISPERSIBLE, 150 MG IN THE MORNING, 1 MONTH
  9. DILTIAZEM IR [Concomitant]
     Indication: DYSPHAGIA
     Dosage: 1 MONTH
  10. QUETIAPINE [Concomitant]
     Indication: AGITATION
     Dosage: 12.5 MG, 1 MONTH
  11. LACTULOSE [Concomitant]
     Indication: CONSTIPATION
     Dosage: 15 ML TWICE DAILY, 1 MONTH
  12. MICROFLAX [Concomitant]
     Indication: CONSTIPATION
     Dosage: 1 MONTH
  13. MORPHINE [Concomitant]
     Indication: DYSKINESIA
     Dosage: PUMP, 7 DAYS
     Route: 058
     Dates: start: 20130712
  14. MORPHINE [Concomitant]
     Indication: PAIN
     Dosage: PUMP, 7 DAYS
     Route: 058
     Dates: start: 20130712
  15. MORPHINE [Concomitant]
     Indication: DYSKINESIA
     Dosage: 2.5 MG, HOURLY, 5 DAYS
     Route: 058
  16. MORPHINE [Concomitant]
     Indication: PAIN
     Dosage: 2.5 MG, HOURLY, 5 DAYS
     Route: 058
  17. CLONAZEPAM [Concomitant]
     Dosage: PUMP
     Route: 058
     Dates: start: 20130712
  18. ONDANSETRON [Concomitant]
     Dosage: 4-8 MG, 3 TIMES DAILY, 7 DAYS
     Route: 058
     Dates: start: 20130712
  19. MIDAZOLAM [Concomitant]
     Indication: DYSKINESIA
     Dosage: 5 MG, HOURLY, 7 DAYS
     Route: 058
     Dates: start: 20130712
  20. MIDAZOLAM [Concomitant]
     Indication: PAIN
     Dosage: 5 MG, HOURLY, 7 DAYS
     Route: 058
     Dates: start: 20130712

REACTIONS (4)
  - Femoral neck fracture [Fatal]
  - Hypophagia [Fatal]
  - Dyskinesia [Unknown]
  - Fall [Recovered/Resolved]
